FAERS Safety Report 6346487-9 (Version None)
Quarter: 2009Q3

REPORT INFORMATION
  Report Type: 
  Country: None (occurrence: None)
  Receive Date: 20090909
  Receipt Date: 20090825
  Transmission Date: 20100115
  Serious: Yes (Other)
  Sender: FDA-Public Use
  Company Number: CA-PFIZER INC-2009259982

PATIENT
  Age: 55 Year

DRUGS (6)
  1. LYRICA [Suspect]
     Dosage: 150 MG, 1X/DAY
  2. LYRICA [Suspect]
     Dosage: 50 MG, 1X/DAY
  3. TRAMADOL HYDROCHLORIDE AND ACETAMINOPHEN [Concomitant]
     Dosage: UNK
  4. BOTOX [Concomitant]
     Dosage: UNK
  5. OGEN [Concomitant]
     Dosage: UNK
  6. PROVERA [Concomitant]
     Dosage: UNK

REACTIONS (2)
  - CORNEAL OEDEMA [None]
  - VAGINAL HAEMORRHAGE [None]
